FAERS Safety Report 11858580 (Version 1)
Quarter: 2015Q4

REPORT INFORMATION
  Report Type: Spontaneous
  Country: US (occurrence: US)
  Receive Date: 20151222
  Receipt Date: 20151222
  Transmission Date: 20160305
  Serious: Yes (Hospitalization)
  Sender: FDA-Public Use
  Company Number: US-AUROBINDO-AUR-APL-2014-04553

PATIENT
  Age: 12 Day
  Sex: Female

DRUGS (2)
  1. LAMOTRIGINE 200MG [Suspect]
     Active Substance: LAMOTRIGINE
     Indication: BIPOLAR DISORDER
     Dosage: 200 MG, ONCE A DAY
     Route: 063
  2. LAMOTRIGINE 200MG [Suspect]
     Active Substance: LAMOTRIGINE
     Dosage: 225 MG, UNK
     Route: 063

REACTIONS (5)
  - Hypotonia neonatal [Recovered/Resolved]
  - Exposure during breast feeding [Recovered/Resolved]
  - Jaundice neonatal [Recovered/Resolved]
  - Foetal exposure during pregnancy [Recovered/Resolved]
  - Dehydration [Recovered/Resolved]
